FAERS Safety Report 23723300 (Version 1)
Quarter: 2024Q2

REPORT INFORMATION
  Report Type: Spontaneous
  Country: US (occurrence: None)
  Receive Date: 20240403
  Receipt Date: 20240403
  Transmission Date: 20240716
  Serious: Yes (Disabling)
  Sender: FDA-Public Use
  Company Number: None

PATIENT
  Age: 75 Year
  Sex: Male
  Weight: 112.5 kg

DRUGS (19)
  1. SODIUM DICHLOROACETATE [Suspect]
     Active Substance: SODIUM DICHLOROACETATE
     Indication: Diabetes mellitus
     Dosage: 1 TABLET DAILY ORAL
     Route: 048
     Dates: start: 20220301, end: 20221120
  2. LIBRE 2 [Concomitant]
  3. LEVEMIR [Concomitant]
     Active Substance: INSULIN DETEMIR
  4. OZEMPIC [Concomitant]
     Active Substance: SEMAGLUTIDE
  5. METFORMIN [Concomitant]
     Active Substance: METFORMIN HYDROCHLORIDE
  6. METOPROLOL [Concomitant]
     Active Substance: METOPROLOL
  7. ATORVASTATIN [Concomitant]
     Active Substance: ATORVASTATIN
  8. VENTOLIN [Concomitant]
     Active Substance: ALBUTEROL SULFATE
  9. TRELEGY ELLIPTA [Concomitant]
     Active Substance: FLUTICASONE FUROATE\UMECLIDINIUM BROMIDE\VILANTEROL TRIFENATATE
  10. TAMSULOSIN [Concomitant]
     Active Substance: TAMSULOSIN
  11. AMLODIPINE [Concomitant]
     Active Substance: AMLODIPINE BESYLATE
  12. TEMAZEPAM [Concomitant]
     Active Substance: TEMAZEPAM
  13. VITAMIN D NOS [Concomitant]
     Active Substance: VITAMIN D NOS
  14. ZYRTEC [Concomitant]
     Active Substance: CETIRIZINE HYDROCHLORIDE
  15. FISH OIL [Concomitant]
     Active Substance: FISH OIL
  16. COLACE [Concomitant]
     Active Substance: DOCUSATE SODIUM
  17. MUCINEX [Concomitant]
     Active Substance: GUAIFENESIN
  18. PEPCID [Concomitant]
     Active Substance: FAMOTIDINE
  19. MULTI-VITAMIN [Concomitant]
     Active Substance: .ALPHA.-TOCOPHEROL ACETATE, DL-\ASCORBIC ACID\CYANOCOBALAMIN\FLUORIDE ION\FOLIC ACID\NIACIN\PYRIDOXI

REACTIONS (2)
  - Paralysis [None]
  - Gait inability [None]

NARRATIVE: CASE EVENT DATE: 20221120
